FAERS Safety Report 5125102-6 (Version None)
Quarter: 2006Q4

REPORT INFORMATION
  Report Type: 
  Country: None (occurrence: None)
  Receive Date: 20061006
  Receipt Date: 20060926
  Transmission Date: 20070319
  Serious: Yes (Hospitalization)
  Sender: FDA-Public Use
  Company Number: 2006061584

PATIENT
  Sex: Male

DRUGS (5)
  1. NIFEDIPINE [Suspect]
     Indication: PREMATURE LABOUR
     Dosage: 60 MG
     Dates: end: 20060206
  2. AMOXICILLIN [Suspect]
     Indication: STREPTOCOCCAL INFECTION
     Dosage: 3 GRAM
     Dates: start: 20060203
  3. LOVENOX [Suspect]
     Indication: THROMBOSIS PROPHYLAXIS
  4. TRACTOCILE (ATOSIBAN) [Suspect]
     Indication: PREMATURE LABOUR
     Dates: start: 20060206, end: 20060208
  5. CELESTONE [Concomitant]

REACTIONS (4)
  - CHORIOAMNIONITIS [None]
  - DRUG EXPOSURE DURING PREGNANCY [None]
  - NEONATAL HYPOXIA [None]
  - PULMONARY HYPERTENSION [None]
